FAERS Safety Report 22072644 (Version 3)
Quarter: 2023Q2

REPORT INFORMATION
  Report Type: Report from Study
  Country: US (occurrence: US)
  Receive Date: 20230308
  Receipt Date: 20230615
  Transmission Date: 20230721
  Serious: Yes (Hospitalization)
  Sender: FDA-Public Use
  Company Number: US-ETON PHARMACEUTICALS, INC-2023ETO000004

PATIENT

DRUGS (38)
  1. ALKINDI SPRINKLE [Suspect]
     Active Substance: HYDROCORTISONE
     Indication: Adrenal insufficiency
     Dosage: 2 MILLIGRAM, QD
     Route: 048
     Dates: start: 20220222
  2. GUAIFENESIN\SULFAMETHOXAZOLE\TRIMETHOPRIM [Concomitant]
     Active Substance: GUAIFENESIN\SULFAMETHOXAZOLE\TRIMETHOPRIM
     Indication: Infection prophylaxis
     Dosage: 400 MILLIGRAM, BID
  3. BENADRYL [Concomitant]
     Active Substance: DIPHENHYDRAMINE HYDROCHLORIDE
     Indication: Pruritus
     Dosage: AS NEEDED
  4. CELEBREX [Concomitant]
     Active Substance: CELECOXIB
     Indication: Pain in extremity
     Dosage: 50 MILLIGRAM, BID
  5. BROMOCRIPTINE                      /00412202/ [Concomitant]
     Indication: Energy increased
     Dosage: 1.25 MILLIGRAM, TID
  6. CLONAZEPAM [Concomitant]
     Active Substance: CLONAZEPAM
     Indication: Agitation
     Dosage: 0.5 MILLIGRAM, AS NEEDED
  7. CLONIDINE [Concomitant]
     Active Substance: CLONIDINE
     Indication: Affective disorder
     Dosage: 0.1 MILLIGRAM, AS NEEDED
  8. CLONIDINE [Concomitant]
     Active Substance: CLONIDINE
     Indication: Restlessness
  9. COLCHICINE [Concomitant]
     Active Substance: COLCHICINE
     Indication: Mouth ulceration
     Dosage: 0.3 MILLIGRAM, QD
  10. BIFIDOBACTERIUM ANIMALIS LACTIS [Concomitant]
     Active Substance: BIFIDOBACTERIUM ANIMALIS LACTIS
     Indication: Gastrointestinal pain
     Dosage: 1 CHEWABLE TABLET DAILY
  11. FERROUS SULFATE [Concomitant]
     Active Substance: FERROUS SULFATE
     Indication: Iron deficiency
     Dosage: 44FE, QD
  12. GABAPENTIN [Concomitant]
     Active Substance: GABAPENTIN
     Indication: Affective disorder
     Dosage: 200 MILLIGRAM, BID
  13. NAPROXEN                           /00256202/ [Concomitant]
     Indication: Pain in extremity
     Dosage: 220 MILLIGRAM, BID
  14. HYDROCORTISONE                     /00028602/ [Concomitant]
     Indication: Product used for unknown indication
     Dosage: 10 MILLIGRAM, EVERY 8 HOURS AS NEEDED FOR STRESS DOSING
  15. HYDROXYZINE                        /00058402/ [Concomitant]
     Indication: Pruritus
     Dosage: 5 MILLIGRAM, AS NEEDED
  16. LIDOCAINE                          /00033402/ [Concomitant]
     Indication: Central venous catheterisation
  17. MAGNESIUM CITRATE                  /01486801/ [Concomitant]
     Indication: Constipation
     Dosage: 400 MILLIGRAM,  AS NEEDED
  18. MELATONIN                          /07129401/ [Concomitant]
     Indication: Sleep disorder
     Dosage: 5 MILLIGRAM,  AS NEEDED
  19. MELATONIN                          /07129401/ [Concomitant]
     Indication: Insomnia
  20. MIRALAX [Concomitant]
     Active Substance: POLYETHYLENE GLYCOL 3350
     Indication: Constipation
     Dosage: 17 GRAM, BID
  21. NYSTATIN [Concomitant]
     Active Substance: NYSTATIN
     Indication: Oral pain
  22. OMEPRAZOLE SODIUM [Concomitant]
     Active Substance: OMEPRAZOLE SODIUM
     Indication: Gastrooesophageal reflux disease
     Dosage: 10 MILLIGRAM, BID
  23. OMEPRAZOLE SODIUM [Concomitant]
     Active Substance: OMEPRAZOLE SODIUM
     Indication: Dyspepsia
  24. REGLAN                             /00041901/ [Concomitant]
     Indication: Headache
     Dosage: 5 MILLIGRAM, AS NEEDED
  25. SENNA LAXATIVE [Concomitant]
     Active Substance: SENNOSIDES
     Indication: Constipation
     Dosage: 17.2 MILLIGRAM, QD
  26. SOLU-CORTEF [Concomitant]
     Active Substance: HYDROCORTISONE SODIUM SUCCINATE
     Indication: Injury
     Dosage: 75 MILLIGRAM, AS NEEDED
  27. SOLU-CORTEF [Concomitant]
     Active Substance: HYDROCORTISONE SODIUM SUCCINATE
     Indication: Stress
  28. TUMS EX [Concomitant]
     Active Substance: CALCIUM CARBONATE
     Indication: Antacid therapy
     Dosage: 375 MILLIGRAM, QD
  29. VITAMIN B2                         /00154901/ [Concomitant]
     Indication: Headache
     Dosage: 200 MILLIGRAM, QD
  30. VITAMIN B6 AND FLUOCINONIDE [Concomitant]
     Indication: Sleep disorder
     Dosage: 400 MILLIGRAM, QD
  31. VITAMIN C [Concomitant]
     Active Substance: ASCORBIC ACID
     Indication: Product used for unknown indication
     Dosage: 250 MILLIGRAM, QD
  32. VITAMIN D3 [Concomitant]
     Active Substance: CHOLECALCIFEROL
     Indication: Hypovitaminosis
     Dosage: 800 INTERNATIONAL UNIT, QD
  33. DICLOFENAC [Concomitant]
     Active Substance: DICLOFENAC
     Indication: Myalgia
  34. DICLOFENAC [Concomitant]
     Active Substance: DICLOFENAC
     Indication: Arthralgia
  35. ZOFRAN [Concomitant]
     Active Substance: ONDANSETRON HYDROCHLORIDE
     Indication: Nausea
     Dosage: 4 MILLIGRAM, AS NEEDED
  36. ZOLOFT [Concomitant]
     Active Substance: SERTRALINE HYDROCHLORIDE
     Indication: Depressed mood
     Dosage: 37.5 MILLIGRAM, QD
  37. AMOX                               /00249601/ [Concomitant]
     Indication: Product used for unknown indication
  38. PREDNISONE [Concomitant]
     Active Substance: PREDNISONE
     Indication: Product used for unknown indication

REACTIONS (7)
  - Acute kidney injury [Recovering/Resolving]
  - Dehydration [Recovering/Resolving]
  - Rhinovirus infection [Recovering/Resolving]
  - Gastroenteritis viral [Recovered/Resolved]
  - Device related sepsis [Recovering/Resolving]
  - COVID-19 [Recovered/Resolved]
  - Urticaria [Recovered/Resolved]

NARRATIVE: CASE EVENT DATE: 20220101
